FAERS Safety Report 5541661-3 (Version None)
Quarter: 2007Q4

REPORT INFORMATION
  Report Type: 
  Country: None (occurrence: None)
  Receive Date: 20071210
  Receipt Date: 20071129
  Transmission Date: 20080405
  Serious: Yes (Other)
  Sender: FDA-Public Use
  Company Number: PHHO2007AU19711

PATIENT
  Sex: Male

DRUGS (1)
  1. AMN107 [Suspect]
     Dosage: 400 MG, BID
     Route: 048

REACTIONS (7)
  - ARTHRALGIA [None]
  - DYSURIA [None]
  - ERYTHEMA [None]
  - EYE PAIN [None]
  - EYE PRURITUS [None]
  - LETHARGY [None]
  - POLLAKIURIA [None]
